FAERS Safety Report 7477168-6 (Version None)
Quarter: 2011Q2

REPORT INFORMATION
  Report Type: 
  Country: None (occurrence: None)
  Receive Date: 20110512
  Receipt Date: 20110428
  Transmission Date: 20111010
  Serious: Yes (Other)
  Sender: FDA-Public Use
  Company Number: US-ELI_LILLY_AND_COMPANY-US201105000239

PATIENT
  Sex: Female

DRUGS (9)
  1. FORTEO [Suspect]
     Dosage: 20 UG, QD
     Route: 065
     Dates: start: 20101201
  2. ASPIRIN W/CAFFEINE [Concomitant]
     Dosage: UNK
     Route: 065
  3. CALCIUM [Concomitant]
     Dosage: UNK
     Route: 065
  4. BUTALBITAL [Concomitant]
     Dosage: UNK
     Route: 065
  5. MACROGOL [Concomitant]
     Dosage: UNK
     Route: 065
  6. FORTEO [Suspect]
     Indication: OSTEOPOROSIS
     Dosage: 20 UG, QD
     Route: 065
     Dates: start: 20090601, end: 20101001
  7. VITAMINS [Concomitant]
     Dosage: UNK
     Route: 065
  8. CLONAZEPAM [Concomitant]
     Dosage: UNK
     Route: 065
  9. TIMOLOL MALEATE [Concomitant]
     Dosage: UNK
     Route: 065

REACTIONS (2)
  - BREAST MASS [None]
  - BREAST CANCER [None]
